FAERS Safety Report 9114194 (Version 1)
Quarter: 2013Q1

REPORT INFORMATION
  Report Type: Spontaneous
  Country: US (occurrence: US)
  Receive Date: 20130208
  Receipt Date: 20130208
  Transmission Date: 20140127
  Serious: Yes (Death)
  Sender: FDA-Public Use
  Company Number: US-INCYTE CORPORATION-2013IN000244

PATIENT
  Age: 83 Year
  Sex: Male

DRUGS (10)
  1. JAKAFI [Suspect]
     Dosage: 15 MG, BID
     Route: 048
  2. LASIX [Concomitant]
     Dosage: UNK
  3. MEGESTROL AC [Concomitant]
  4. COUMADIN [Concomitant]
  5. OMEPRAZOLE [Concomitant]
  6. DIGOXIN [Concomitant]
  7. ACTONEL [Concomitant]
  8. MULTIVITAMIN [Concomitant]
  9. FOLIC ACID [Concomitant]
  10. LEVOXYL [Concomitant]

REACTIONS (1)
  - Death [Fatal]
